FAERS Safety Report 16853709 (Version 1)
Quarter: 2019Q3

REPORT INFORMATION
  Report Type: Spontaneous
  Country: HR (occurrence: HR)
  Receive Date: 20190926
  Receipt Date: 20190926
  Transmission Date: 20191005
  Serious: Yes (Other)
  Sender: FDA-Public Use
  Company Number: HR-EMD SERONO-E2B_90070882

PATIENT
  Age: 26 Year
  Sex: Female
  Weight: 60 kg

DRUGS (1)
  1. REBIF [Suspect]
     Active Substance: INTERFERON BETA-1A
     Indication: PRODUCT USED FOR UNKNOWN INDICATION
     Dosage: PRE FILLED SYRINGES
     Route: 058
     Dates: start: 20150302, end: 20190823

REACTIONS (2)
  - Myosclerosis [Recovered/Resolved with Sequelae]
  - Muscle injury [Recovered/Resolved with Sequelae]

NARRATIVE: CASE EVENT DATE: 201902
